FAERS Safety Report 12322540 (Version 1)
Quarter: 2016Q2

REPORT INFORMATION
  Report Type: Spontaneous
  Country: US (occurrence: None)
  Receive Date: 20160429
  Receipt Date: 20160429
  Transmission Date: 20160815
  Serious: No
  Sender: FDA-Public Use
  Company Number: None

PATIENT
  Age: 49 Year
  Sex: Female

DRUGS (1)
  1. HUMIRA [Suspect]
     Active Substance: ADALIMUMAB
     Indication: RHEUMATOID ARTHRITIS
     Dosage: 40 MG Q2 WEEKS SUB Q
     Route: 058
     Dates: start: 20160327

REACTIONS (2)
  - Injection site bruising [None]
  - Haemorrhage [None]

NARRATIVE: CASE EVENT DATE: 20160327
